FAERS Safety Report 5096981-6 (Version None)
Quarter: 2006Q3

REPORT INFORMATION
  Report Type: 
  Country: None (occurrence: None)
  Receive Date: 20060831
  Receipt Date: 20060831
  Transmission Date: 20061208
  Serious: Yes (Hospitalization)
  Sender: FDA-Public Use
  Company Number: None

PATIENT
  Age: 76 Year
  Sex: Female
  Weight: 52.6 kg

DRUGS (12)
  1. DIVALPROIC ACID  SUSTAINED RELEAS    250MG      ABBOTT [Suspect]
     Indication: BIPOLAR DISORDER
     Dosage: 250MG MORNING, 500MG EVENING   TWO TIMES DAILY   PO
     Route: 048
     Dates: start: 20041001, end: 20051201
  2. DIVALPROIC ACID  SUSTAINED RELEAS    250MG      ABBOTT [Suspect]
     Indication: DEMENTIA
     Dosage: 250MG MORNING, 500MG EVENING   TWO TIMES DAILY   PO
     Route: 048
     Dates: start: 20041001, end: 20051201
  3. DIVALPROIC ACID  SUSTAINED RELEAS    250MG      ABBOTT [Suspect]
     Indication: DEPRESSION
     Dosage: 250MG MORNING, 500MG EVENING   TWO TIMES DAILY   PO
     Route: 048
     Dates: start: 20041001, end: 20051201
  4. MULTIPLE VITAMIN [Concomitant]
  5. TOLTERDINE SR [Concomitant]
  6. AMLODIPINE [Concomitant]
  7. ARIPIPRAZOLE [Concomitant]
  8. ASPIRIN [Concomitant]
  9. VENLAFAXINE SR [Concomitant]
  10. OMEPRAZOLE [Concomitant]
  11. CLONAZEPINE [Concomitant]
  12. DOCUSATE SODIUM [Concomitant]

REACTIONS (5)
  - ASTHENIA [None]
  - ELECTROCARDIOGRAM ST-T CHANGE [None]
  - EXTRAPYRAMIDAL DISORDER [None]
  - FALL [None]
  - PARKINSONISM [None]
